FAERS Safety Report 13258467 (Version 2)
Quarter: 2017Q2

REPORT INFORMATION
  Report Type: Spontaneous
  Country: BR (occurrence: BR)
  Receive Date: 20170222
  Receipt Date: 20170428
  Transmission Date: 20170830
  Serious: Yes (Other)
  Sender: FDA-Public Use
  Company Number: BR-009507513-1702BRA008789

PATIENT
  Age: 22 Year
  Sex: Female
  Weight: 60 kg

DRUGS (4)
  1. AZITHROMYCIN ANHYDROUS. [Concomitant]
     Active Substance: AZITHROMYCIN ANHYDROUS
     Indication: SINUSITIS
  2. MERCILON [Suspect]
     Active Substance: DESOGESTREL\ETHINYL ESTRADIOL
     Indication: CONTRACEPTION
     Dosage: 1 TABLET PER DAY
     Route: 048
     Dates: start: 1995
  3. MERCILON [Suspect]
     Active Substance: DESOGESTREL\ETHINYL ESTRADIOL
     Dosage: UNK
     Route: 048
     Dates: end: 201410
  4. MERCILON [Suspect]
     Active Substance: DESOGESTREL\ETHINYL ESTRADIOL
     Dosage: 1 TABLET PER DAY
     Route: 048
     Dates: start: 201501, end: 201702

REACTIONS (15)
  - Dysmenorrhoea [Not Recovered/Not Resolved]
  - Breast mass [Not Recovered/Not Resolved]
  - Hypomenorrhoea [Recovered/Resolved]
  - Amenorrhoea [Recovered/Resolved]
  - Fluid retention [Recovered/Resolved]
  - Nephrolithiasis [Not Recovered/Not Resolved]
  - Menstrual disorder [Not Recovered/Not Resolved]
  - Rash macular [Not Recovered/Not Resolved]
  - Crystal urine [Not Recovered/Not Resolved]
  - Headache [Not Recovered/Not Resolved]
  - Back pain [Not Recovered/Not Resolved]
  - Withdrawal bleed [Not Recovered/Not Resolved]
  - Menorrhagia [Recovered/Resolved]
  - Benign nipple neoplasm [Not Recovered/Not Resolved]
  - Bacterial test positive [Not Recovered/Not Resolved]

NARRATIVE: CASE EVENT DATE: 1997
